FAERS Safety Report 18016108 (Version 9)
Quarter: 2020Q3

REPORT INFORMATION
  Report Type: Report from Study
  Country: ES (occurrence: ES)
  Receive Date: 20200713
  Receipt Date: 20200911
  Transmission Date: 20201103
  Serious: Yes (Death, Hospitalization)
  Sender: FDA-Public Use
  Company Number: ES-EISAI MEDICAL RESEARCH-EC-2020-077183

PATIENT
  Age: 75 Year
  Sex: Male
  Weight: 86 kg

DRUGS (22)
  1. FENTANYL. [Suspect]
     Active Substance: FENTANYL
     Indication: BONE PAIN
     Route: 003
     Dates: start: 20200529, end: 20200703
  2. METOCLOPRAMIDE. [Concomitant]
     Active Substance: METOCLOPRAMIDE
     Dates: start: 20200604
  3. EPOETIN [Concomitant]
     Active Substance: ERYTHROPOIETIN
     Dates: start: 20200604, end: 20200702
  4. LENVATINIB [Suspect]
     Active Substance: LENVATINIB
     Indication: NON-SMALL CELL LUNG CANCER
     Route: 048
     Dates: start: 20200227
  5. PEMETREXED. [Suspect]
     Active Substance: PEMETREXED
     Route: 041
     Dates: start: 20200611, end: 20200611
  6. ATORVASTATIN [Concomitant]
     Active Substance: ATORVASTATIN
     Dates: start: 20200529
  7. CARBOPLATIN. [Suspect]
     Active Substance: CARBOPLATIN
     Indication: NON-SMALL CELL LUNG CANCER
     Dosage: AUC 5 MG/ML/MIN
     Route: 041
     Dates: start: 20200227, end: 20200415
  8. PEMETREXED. [Suspect]
     Active Substance: PEMETREXED
     Route: 041
     Dates: start: 20200709
  9. EFFENTORA [Concomitant]
     Active Substance: FENTANYL CITRATE
     Dates: start: 20200428, end: 20200702
  10. PEMETREXED. [Suspect]
     Active Substance: PEMETREXED
     Indication: NON-SMALL CELL LUNG CANCER
     Route: 041
     Dates: start: 20200227, end: 20200506
  11. EMCONCOR [Concomitant]
     Active Substance: BISOPROLOL FUMARATE
     Dates: start: 20120209
  12. MEGESTROL ACETATE. [Concomitant]
     Active Substance: MEGESTROL ACETATE
     Dates: start: 20200506
  13. PEMBROLIZUMAB. [Suspect]
     Active Substance: PEMBROLIZUMAB
     Route: 041
     Dates: start: 20200611, end: 20200611
  14. CARBOPLATIN. [Suspect]
     Active Substance: CARBOPLATIN
     Dosage: AUC 5 MG/ML/MIN
     Route: 041
     Dates: start: 20200506, end: 20200506
  15. ESCITALOPRAM [Concomitant]
     Active Substance: ESCITALOPRAM OXALATE
     Dates: start: 20200604
  16. ASPIRIN. [Concomitant]
     Active Substance: ASPIRIN
     Dates: start: 20200529, end: 20200702
  17. GRANISETRON [Concomitant]
     Active Substance: GRANISETRON
     Dates: start: 20200604
  18. DUODART [Concomitant]
     Active Substance: DUTASTERIDE\TAMSULOSIN
     Dates: start: 20200529
  19. PEMBROLIZUMAB. [Suspect]
     Active Substance: PEMBROLIZUMAB
     Indication: NON-SMALL CELL LUNG CANCER
     Route: 041
     Dates: start: 20200227, end: 20200506
  20. PEMBROLIZUMAB. [Suspect]
     Active Substance: PEMBROLIZUMAB
     Route: 041
     Dates: start: 20200709
  21. OMEPRAZOLE. [Concomitant]
     Active Substance: OMEPRAZOLE
     Dates: start: 20120209
  22. ACETAMINOPHEN. [Concomitant]
     Active Substance: ACETAMINOPHEN
     Dates: start: 20200604

REACTIONS (1)
  - Encephalopathy [Recovered/Resolved]

NARRATIVE: CASE EVENT DATE: 20200630
